FAERS Safety Report 26077843 (Version 2)
Quarter: 2025Q4

REPORT INFORMATION
  Report Type: Spontaneous
  Country: US (occurrence: US)
  Receive Date: 20251122
  Receipt Date: 20251222
  Transmission Date: 20260118
  Serious: Yes (Hospitalization)
  Sender: MDD OPERATIONS
  Company Number: US-MDD US Operations-MDD202510-004015

PATIENT
  Age: 77 Year
  Sex: Female

DRUGS (3)
  1. ONAPGO [Suspect]
     Active Substance: APOMORPHINE HYDROCHLORIDE
     Indication: Parkinson^s disease
     Dosage: INITIAL DOSE
     Dates: start: 20250909
  2. ONAPGO [Suspect]
     Active Substance: APOMORPHINE HYDROCHLORIDE
     Dosage: 1.5MG PER HOUR, CONTINUOUS INFUSION FOR UPTO16 HOURS A DAY BUT THE PATIENT IS WEARING IT FOR 10 HOUR
     Dates: start: 20250912
  3. ONAPGO [Suspect]
     Active Substance: APOMORPHINE HYDROCHLORIDE
     Dosage: CONTINUOUS INFUSION FOR UP TO 16 HOURS A DAY

REACTIONS (4)
  - Arthralgia [Unknown]
  - Infection [Unknown]
  - Nausea [Not Recovered/Not Resolved]
  - Intentional product use issue [Unknown]

NARRATIVE: CASE EVENT DATE: 20250909
